FAERS Safety Report 4824881-2 (Version None)
Quarter: 2005Q4

REPORT INFORMATION
  Report Type: 
  Country: None (occurrence: None)
  Receive Date: 20051110
  Receipt Date: 20051103
  Transmission Date: 20060501
  Serious: Yes (Hospitalization)
  Sender: FDA-Public Use
  Company Number: US-GLAXOSMITHKLINE-A0580775A

PATIENT
  Age: 65 Year
  Sex: Female

DRUGS (16)
  1. ADVAIR DISKUS 100/50 [Suspect]
     Indication: CHRONIC OBSTRUCTIVE PULMONARY DISEASE
     Dosage: 1PUFF TWICE PER DAY
     Route: 055
  2. ADVAIR DISKUS 100/50 [Suspect]
     Dosage: 1PUFF TWICE PER DAY
     Route: 055
  3. SINGULAIR [Concomitant]
  4. PLAVIX [Concomitant]
  5. HYDROCHLOROTHIAZIDE [Concomitant]
  6. NEXIUM [Concomitant]
  7. DIOVAN [Concomitant]
  8. ASPIRIN [Concomitant]
  9. ALLEGRA [Concomitant]
  10. PREDNISONE [Concomitant]
  11. ZITHROMAX [Concomitant]
  12. FLU SHOT [Concomitant]
  13. PNEUMONIA SHOT [Concomitant]
  14. AMBIEN [Concomitant]
  15. XOPENEX [Concomitant]
  16. OXYGEN [Concomitant]

REACTIONS (7)
  - BRONCHITIS [None]
  - COUGH [None]
  - GLAUCOMA [None]
  - ILL-DEFINED DISORDER [None]
  - OXYGEN SATURATION DECREASED [None]
  - RHINORRHOEA [None]
  - WHEEZING [None]
